FAERS Safety Report 5123799-8 (Version None)
Quarter: 2006Q3

REPORT INFORMATION
  Report Type: 
  Country: None (occurrence: None)
  Receive Date: 20060802
  Receipt Date: 20050705
  Transmission Date: 20061208
  Serious: Yes (Other)
  Sender: FDA-Public Use
  Company Number: 2005-07-0631

PATIENT
  Age: 47 Year
  Sex: Male

DRUGS (2)
  1. INTERFERON ALFA-2B INJECTABLE [Suspect]
     Indication: HEPATITIS C
     Dosage: TIW
     Dates: start: 20000801, end: 20010801
  2. RIBAVIRIN [Suspect]
     Indication: HEPATITIS C
     Dosage: UNKNOWN ORAL
     Route: 048
     Dates: start: 20000801, end: 20010801

REACTIONS (1)
  - HAEMOLYTIC ANAEMIA [None]
